FAERS Safety Report 8647621 (Version 2)
Quarter: 2012Q4

REPORT INFORMATION
  Report Type: 
  Country: DE (occurrence: DE)
  Receive Date: 20120703
  Receipt Date: 20120905
  Transmission Date: 20130627
  Serious: Yes (Other)
  Sender: FDA-Public Use
  Company Number: DE-US-EMD SERONO, INC.-7143525

PATIENT
  Age: 34 Year
  Sex: Female

DRUGS (4)
  1. REBIF [Suspect]
     Indication: MULTIPLE SCLEROSIS
     Route: 058
     Dates: start: 20110211, end: 20120603
  2. REBIF [Suspect]
     Route: 058
     Dates: start: 20120629, end: 20120704
  3. REBIF [Suspect]
     Route: 058
     Dates: start: 20120706, end: 20120711
  4. REBIF [Suspect]
     Route: 058
     Dates: start: 20120713, end: 20120815

REACTIONS (2)
  - Abortion spontaneous [Recovered/Resolved]
  - Maternal exposure during pregnancy [Recovered/Resolved]
